FAERS Safety Report 13002628 (Version 4)
Quarter: 2017Q1

REPORT INFORMATION
  Report Type: Spontaneous
  Country: DE (occurrence: DE)
  Receive Date: 20161206
  Receipt Date: 20170103
  Transmission Date: 20170428
  Serious: Yes (Hospitalization, Other)
  Sender: FDA-Public Use
  Company Number: DE-SA-2016SA047921

PATIENT
  Age: 51 Year
  Sex: Male

DRUGS (8)
  1. EMSELEX [Concomitant]
     Active Substance: DARIFENACIN HYDROBROMIDE
     Route: 048
     Dates: start: 20160909
  2. URIVESC [Concomitant]
     Active Substance: TROSPIUM CHLORIDE
     Route: 048
     Dates: start: 20130121
  3. SIMVASTATIN. [Interacting]
     Active Substance: SIMVASTATIN
     Route: 065
  4. AUBAGIO [Suspect]
     Active Substance: TERIFLUNOMIDE
     Indication: RELAPSING-REMITTING MULTIPLE SCLEROSIS
     Route: 048
     Dates: start: 20160114, end: 201611
  5. ASPIRIN. [Concomitant]
     Active Substance: ASPIRIN
     Route: 048
     Dates: start: 20130121
  6. VITAMIN D [Concomitant]
     Active Substance: CHOLECALCIFEROL
     Route: 048
     Dates: start: 20150521
  7. ALENDRON [Concomitant]
     Active Substance: ALENDRONATE SODIUM
     Route: 048
     Dates: start: 20160909
  8. DEKRISTOL [Concomitant]
     Active Substance: CHOLECALCIFEROL
     Route: 048
     Dates: start: 20160909

REACTIONS (12)
  - Malaise [Not Recovered/Not Resolved]
  - Endocarditis [Unknown]
  - Hyperlipidaemia [Unknown]
  - Gastrointestinal disorder [Not Recovered/Not Resolved]
  - Staphylococcal sepsis [Unknown]
  - Multiple sclerosis relapse [Unknown]
  - Meningoencephalitis herpetic [Not Recovered/Not Resolved]
  - Blood triglycerides increased [Not Recovered/Not Resolved]
  - Drug interaction [Unknown]
  - Abdominal pain lower [Unknown]
  - Blood cholesterol abnormal [Not Recovered/Not Resolved]
  - Malaise [Not Recovered/Not Resolved]

NARRATIVE: CASE EVENT DATE: 2016
